FAERS Safety Report 4521829-5 (Version None)
Quarter: 2004Q4

REPORT INFORMATION
  Report Type: 
  Country: None (occurrence: None)
  Receive Date: 20041206
  Receipt Date: 20041124
  Transmission Date: 20050328
  Serious: Yes (Hospitalization)
  Sender: FDA-Public Use
  Company Number: 2004EU002106

PATIENT
  Age: 39 Year
  Sex: Male

DRUGS (5)
  1. PROGRAF [Suspect]
     Indication: RENAL TRANSPLANT
     Dates: start: 19990101, end: 20010401
  2. PROGRAF [Suspect]
     Indication: RENAL TRANSPLANT
     Dates: start: 20010401
  3. CELLCEPT [Suspect]
     Indication: RENAL TRANSPLANT
     Dates: start: 19990101, end: 20010401
  4. CELLCEPT [Suspect]
     Indication: RENAL TRANSPLANT
     Dates: start: 20010401
  5. SOLUPRED (PREDNISOLONE SODIUM SULFOBENZOATE) [Concomitant]

REACTIONS (3)
  - APLASIA PURE RED CELL [None]
  - DRUG LEVEL INCREASED [None]
  - ERYTHEMA INFECTIOSUM [None]
